FAERS Safety Report 5514545-4 (Version None)
Quarter: 2007Q4

REPORT INFORMATION
  Report Type: 
  Country: None (occurrence: None)
  Receive Date: 20071113
  Receipt Date: 20071107
  Transmission Date: 20080405
  Serious: Yes (Hospitalization)
  Sender: FDA-Public Use
  Company Number: A0692263A

PATIENT
  Age: 59 Year
  Sex: Female

DRUGS (16)
  1. ADVAIR DISKUS 100/50 [Suspect]
     Indication: ASTHMA
     Route: 055
     Dates: start: 20050101
  2. SINGULAIR [Concomitant]
  3. HYDROCODONE BITARTRATE [Concomitant]
  4. NAPROXEN [Concomitant]
  5. METFORMIN HCL [Concomitant]
  6. PRAVASTATIN [Concomitant]
  7. GLIPIZIDE [Concomitant]
  8. CITALOPRAM HYDROBROMIDE [Concomitant]
  9. TRAZODONE HCL [Concomitant]
  10. POTASSIUM CL [Concomitant]
  11. NORVASC [Concomitant]
  12. CENTRUM SILVER [Concomitant]
  13. ASPIRIN [Concomitant]
  14. TUMS [Concomitant]
  15. BENADRYL [Concomitant]
  16. BIPAP [Concomitant]

REACTIONS (6)
  - ASTHMA [None]
  - BLINDNESS [None]
  - CATARACT [None]
  - DIARRHOEA [None]
  - HEADACHE [None]
  - THROMBOSIS [None]
